FAERS Safety Report 8209679-X (Version None)
Quarter: 2012Q1

REPORT INFORMATION
  Report Type: 
  Country: None (occurrence: None)
  Receive Date: 20120314
  Receipt Date: 20120306
  Transmission Date: 20120608
  Serious: Yes (Other)
  Sender: FDA-Public Use
  Company Number: IT-B.I. PHARMACEUTICALS,INC./RIDGEFIELD-2012-EU-01324GD

PATIENT
  Age: 44 Year
  Sex: Male

DRUGS (7)
  1. STAVUDINE [Suspect]
     Indication: HIV TEST POSITIVE
  2. NEVIRAPINE [Suspect]
     Indication: HIV TEST POSITIVE
  3. LAMIVUDINE + ZIDOVUDINE [Suspect]
     Indication: HIV TEST POSITIVE
  4. TENOFOVIR [Suspect]
     Indication: HIV TEST POSITIVE
  5. DIDANOSINE [Suspect]
     Indication: HIV TEST POSITIVE
  6. FOSAMPRENAVIR W/RITONAVIR [Suspect]
     Indication: HIV TEST POSITIVE
  7. ABACAVIR [Suspect]
     Indication: HIV TEST POSITIVE

REACTIONS (4)
  - HEPATIC FIBROSIS [None]
  - HYPERTRANSAMINASAEMIA [None]
  - HEPATIC STEATOSIS [None]
  - DYSLIPIDAEMIA [None]
